FAERS Safety Report 9207412 (Version 1)
Quarter: 2013Q2

REPORT INFORMATION
  Report Type: Spontaneous
  Country: US (occurrence: None)
  Receive Date: 20130402
  Receipt Date: 20130402
  Transmission Date: 20140414
  Serious: Yes (Other)
  Sender: FDA-Public Use
  Company Number: None

PATIENT
  Age: 54 Year
  Sex: Female
  Weight: 62.6 kg

DRUGS (1)
  1. DHEA [Suspect]
     Indication: HORMONE LEVEL ABNORMAL
     Route: 060
     Dates: start: 20121225, end: 20130302

REACTIONS (5)
  - Eyelid skin dryness [None]
  - Erythema of eyelid [None]
  - Eyelids pruritus [None]
  - Eyelid oedema [None]
  - Skin exfoliation [None]
